FAERS Safety Report 8918191 (Version 1)
Quarter: 2012Q4

REPORT INFORMATION
  Report Type: 
  Country: US (occurrence: US)
  Receive Date: 20121120
  Receipt Date: 20121120
  Transmission Date: 20130627
  Serious: No
  Sender: FDA-Public Use
  Company Number: US-ASTRAZENECA-2012SE22104

PATIENT
  Age: 70 Year
  Sex: Female
  Weight: 63.5 kg

DRUGS (4)
  1. NEXIUM [Suspect]
     Route: 048
  2. PROTONIX [Suspect]
  3. BLOOD PRESSURE MEDICATIONS [Concomitant]
  4. NERVE PILL [Concomitant]

REACTIONS (4)
  - Dyspepsia [Unknown]
  - Gastrooesophageal reflux disease [Unknown]
  - Vomiting [Unknown]
  - Intentional drug misuse [Unknown]
